FAERS Safety Report 17263429 (Version 1)
Quarter: 2020Q1

REPORT INFORMATION
  Report Type: Spontaneous
  Country: US (occurrence: US)
  Receive Date: 20200112
  Receipt Date: 20200112
  Transmission Date: 20200409
  Serious: Yes (Other)
  Sender: FDA-Public Use
  Company Number: None

PATIENT
  Age: 70 Year
  Sex: Female
  Weight: 58.5 kg

DRUGS (1)
  1. LATANOPROST OPHTHALMIC SOLUTION .005 [Suspect]
     Active Substance: LATANOPROST
     Indication: GLAUCOMA
     Dosage: ?          QUANTITY:1 DROP(S);?
     Route: 047
     Dates: start: 20191201, end: 20200101

REACTIONS (6)
  - Muscular weakness [None]
  - Palpitations [None]
  - Mydriasis [None]
  - Depression [None]
  - Chest pain [None]
  - Glare [None]

NARRATIVE: CASE EVENT DATE: 20191205
